FAERS Safety Report 6931188-6 (Version None)
Quarter: 2010Q3

REPORT INFORMATION
  Report Type: 
  Country: None (occurrence: None)
  Receive Date: 20100813
  Receipt Date: 20100805
  Transmission Date: 20110219
  Serious: Yes (Other)
  Sender: FDA-Public Use
  Company Number: DSA_43663_2010

PATIENT
  Sex: Female

DRUGS (9)
  1. XENAZINE [Suspect]
     Indication: BALLISMUS
     Dosage: (12.5 MG BID ORAL)
     Route: 048
     Dates: start: 20100804
  2. XENAZINE [Suspect]
     Indication: CHOREA
     Dosage: (12.5 MG BID ORAL)
     Route: 048
     Dates: start: 20100804
  3. VICODIN [Concomitant]
  4. XANAX [Concomitant]
  5. ATROVENT [Concomitant]
  6. TRAZODONE HCL [Concomitant]
  7. ADVAIR DISKUS 100/50 [Concomitant]
  8. PRILOSEC [Concomitant]
  9. LEXAPRO [Concomitant]

REACTIONS (7)
  - EYELID PTOSIS [None]
  - FALL [None]
  - FATIGUE [None]
  - GAIT DISTURBANCE [None]
  - SENSORY DISTURBANCE [None]
  - SOMNOLENCE [None]
  - STARING [None]
